FAERS Safety Report 5010049-6 (Version None)
Quarter: 2006Q2

REPORT INFORMATION
  Report Type: 
  Country: None (occurrence: None)
  Receive Date: 20060523
  Receipt Date: 20060510
  Transmission Date: 20061013
  Serious: Yes (Other)
  Sender: FDA-Public Use
  Company Number: 2006063317

PATIENT
  Age: 59 Year
  Sex: Female

DRUGS (3)
  1. ADRIAMYCIN PFS [Suspect]
     Indication: NON-HODGKIN'S LYMPHOMA
     Dates: start: 19990101
  2. VINCRISTINE [Suspect]
     Indication: NON-HODGKIN'S LYMPHOMA
     Dates: start: 19990101
  3. CYCLOPHOSPHAMIDE [Suspect]
     Indication: NON-HODGKIN'S LYMPHOMA
     Dates: start: 19990101

REACTIONS (2)
  - CARDIAC FAILURE [None]
  - CARDIOMYOPATHY [None]
